FAERS Safety Report 15542761 (Version 1)
Quarter: 2018Q4

REPORT INFORMATION
  Report Type: Spontaneous
  Country: US (occurrence: US)
  Receive Date: 20181023
  Receipt Date: 20181023
  Transmission Date: 20190205
  Serious: Yes (Hospitalization)
  Sender: FDA-Public Use
  Company Number: US-ACELLA PHARMACEUTICALS, LLC-2056887

PATIENT
  Age: 74 Year
  Sex: Female

DRUGS (5)
  1. LIDOCAINE. [Suspect]
     Active Substance: LIDOCAINE
     Route: 061
  2. GABAPENTIN. [Suspect]
     Active Substance: GABAPENTIN
     Indication: PAIN
     Route: 061
  3. KETOPROFEN. [Suspect]
     Active Substance: KETOPROFEN
     Route: 061
  4. KETAMINE HYDROCHLORIDE. [Suspect]
     Active Substance: KETAMINE HYDROCHLORIDE
     Route: 061
  5. CLONIDINE. [Suspect]
     Active Substance: CLONIDINE
     Route: 061

REACTIONS (5)
  - Abnormal behaviour [Recovered/Resolved]
  - Homicidal ideation [Recovered/Resolved]
  - Mental status changes [Recovered/Resolved]
  - Suicidal ideation [Recovered/Resolved]
  - Agitation [Recovered/Resolved]
